FAERS Safety Report 25633759 (Version 4)
Quarter: 2025Q3

REPORT INFORMATION
  Report Type: Report from Study
  Country: US (occurrence: US)
  Receive Date: 20250801
  Receipt Date: 20250923
  Transmission Date: 20251021
  Serious: No
  Sender: MALLINCKRODT
  Company Number: US-MALLINCKRODT-MNK202504548

PATIENT
  Age: 38 Year
  Sex: Female

DRUGS (3)
  1. CORTICOTROPIN [Suspect]
     Active Substance: CORTICOTROPIN
     Indication: Rheumatoid arthritis
     Route: 058
     Dates: start: 20250705
  2. CORTICOTROPIN [Suspect]
     Active Substance: CORTICOTROPIN
     Indication: Rheumatoid arthritis
  3. OZEMPIC [Concomitant]
     Active Substance: SEMAGLUTIDE

REACTIONS (6)
  - Wound [Unknown]
  - Dyspepsia [Unknown]
  - Gastrooesophageal reflux disease [Unknown]
  - Dyspnoea [Unknown]
  - Heart rate increased [Unknown]
  - Injection site discolouration [Unknown]

NARRATIVE: CASE EVENT DATE: 20250101
